FAERS Safety Report 4372724-6 (Version None)
Quarter: 2004Q2

REPORT INFORMATION
  Report Type: 
  Country: None (occurrence: None)
  Receive Date: 20040602
  Receipt Date: 20040415
  Transmission Date: 20050107
  Serious: No
  Sender: FDA-Public Use
  Company Number: 200417621BWH

PATIENT
  Age: 48 Year
  Sex: Male

DRUGS (7)
  1. LEVITRA [Suspect]
     Dosage: 10 MG, BIW, ORAL
     Route: 048
     Dates: start: 20040101
  2. VIAGRA [Concomitant]
  3. AMIODARONE HCL [Concomitant]
  4. VERAPAMIL [Concomitant]
  5. ASPIRIN [Concomitant]
  6. ALLOPURINOL [Concomitant]
  7. INDOMETHACIN [Concomitant]

REACTIONS (4)
  - DYSPNOEA [None]
  - EYE IRRITATION [None]
  - LACRIMATION INCREASED [None]
  - VISION BLURRED [None]
